FAERS Safety Report 9496482 (Version 2)
Quarter: 2013Q4

REPORT INFORMATION
  Report Type: Spontaneous
  Country: CN (occurrence: CN)
  Receive Date: 20130904
  Receipt Date: 20131105
  Transmission Date: 20140711
  Serious: Yes (Other)
  Sender: FDA-Public Use
  Company Number: PHHY2013CN095540

PATIENT
  Age: 49 Year
  Sex: Female

DRUGS (2)
  1. CARBAMAZEPINE [Suspect]
     Indication: TRIGEMINAL NEURALGIA
     Dosage: 300 MG, PER DAY
  2. CARBAMAZEPINE [Suspect]
     Dosage: 600 MG, PER DAY

REACTIONS (7)
  - Upper gastrointestinal haemorrhage [Unknown]
  - Haematemesis [Recovered/Resolved]
  - Vomiting [Unknown]
  - Epigastric discomfort [Unknown]
  - Nausea [Unknown]
  - Dizziness [Unknown]
  - Drug ineffective [Unknown]
